FAERS Safety Report 7907280-6 (Version None)
Quarter: 2011Q4

REPORT INFORMATION
  Report Type: 
  Country: None (occurrence: None)
  Receive Date: 20111109
  Receipt Date: 20111109
  Transmission Date: 20120403
  Serious: Yes (Hospitalization)
  Sender: FDA-Public Use
  Company Number: None

PATIENT
  Sex: Female
  Weight: 74.4 kg

DRUGS (2)
  1. CARBOPLATIN [Suspect]
     Dosage: 467 MG
     Dates: end: 20111025
  2. TAXOL [Suspect]
     Dosage: 325 MG
     Dates: end: 20111025

REACTIONS (1)
  - HYPOTENSION [None]
